FAERS Safety Report 23712747 (Version 1)
Quarter: 2024Q2

REPORT INFORMATION
  Report Type: Spontaneous
  Country: US (occurrence: US)
  Receive Date: 20240405
  Receipt Date: 20240405
  Transmission Date: 20240715
  Serious: No
  Sender: FDA-Public Use
  Company Number: US-BAYER-2024A050465

PATIENT
  Age: 98 Year
  Sex: Female

DRUGS (1)
  1. CLARITIN LIQUI-GELS [Suspect]
     Active Substance: LORATADINE
     Indication: Sinus congestion
     Dosage: 1 DF
     Route: 048
     Dates: start: 202404

REACTIONS (2)
  - Off label use [Unknown]
  - Product packaging difficult to open [None]
